FAERS Safety Report 8460792-1 (Version None)
Quarter: 2012Q2

REPORT INFORMATION
  Report Type: 
  Country: None (occurrence: None)
  Receive Date: 20120623
  Receipt Date: 20120612
  Transmission Date: 20120825
  Serious: Yes (Other)
  Sender: FDA-Public Use
  Company Number: GB-TEVA-342571ISR

PATIENT
  Age: 21 Year
  Sex: Male

DRUGS (2)
  1. RISPERDAL [Suspect]
     Indication: BIPOLAR DISORDER
     Route: 048
  2. VALPROIC ACID [Suspect]
     Indication: PRODUCT USED FOR UNKNOWN INDICATION
     Dosage: DOSAGE FORM: UNSPECIFIED
     Route: 065

REACTIONS (1)
  - NEUTROPENIA [None]
